FAERS Safety Report 9654438 (Version 2)
Quarter: 2014Q2

REPORT INFORMATION
  Report Type: Spontaneous
  Country: GB (occurrence: GB)
  Receive Date: 20131029
  Receipt Date: 20140418
  Transmission Date: 20141212
  Serious: Yes (Death)
  Sender: FDA-Public Use
  Company Number: PHFR2013GB006105

PATIENT
  Age: 58 Year
  Sex: Male

DRUGS (10)
  1. CLOZARIL [Suspect]
     Indication: SCHIZOPHRENIA
     Dates: start: 20090209
  2. BUSPIRONE [Concomitant]
     Indication: ANXIETY
     Dosage: 10 MG, BID
     Route: 048
  3. SIMVASTATIN [Concomitant]
     Dosage: 40 MG, NOCTE
     Route: 048
  4. THIAMINE [Concomitant]
     Dosage: 100 MG, TID
     Route: 048
  5. ZOLPIDEM [Concomitant]
     Indication: SLEEP DISORDER
     Dosage: 10 MG, NOCTE
     Route: 048
  6. HYOSCINE [Concomitant]
     Indication: SALIVARY HYPERSECRETION
     Dosage: 300 MG, BID
     Route: 048
  7. LANSOPRAZOLE [Concomitant]
     Dosage: 30 MG, DAILY
  8. IBUPROFEN [Concomitant]
     Dosage: 400 MG, TID
  9. CO-CODAMOL [Concomitant]
     Dosage: UNK UKN, UNK
  10. SALBUTAMOL [Concomitant]
     Dosage: UNK UKN, UNK
     Route: 055

REACTIONS (2)
  - Death [Fatal]
  - Chronic obstructive pulmonary disease [Fatal]
